FAERS Safety Report 8513959-8 (Version None)
Quarter: 2012Q3

REPORT INFORMATION
  Report Type: 
  Country: None (occurrence: None)
  Receive Date: 20120717
  Receipt Date: 20120704
  Transmission Date: 20120928
  Serious: Yes (Hospitalization, Other)
  Sender: FDA-Public Use
  Company Number: JP-AMGEN-JPNCT2012043380

PATIENT
  Age: 78 Year
  Sex: Male
  Weight: 51 kg

DRUGS (28)
  1. KREMEZIN [Concomitant]
     Indication: DIABETIC NEPHROPATHY
     Dosage: UNCERTAINTY
     Route: 048
  2. DIART [Concomitant]
     Dosage: UNCERTAINTY
     Route: 048
  3. ALFAROL [Concomitant]
     Dosage: UNCERTAINTY
     Route: 048
  4. AMLODIPINE [Concomitant]
     Dosage: UNCERTAINTY
     Route: 048
  5. PRAVASTATIN [Concomitant]
     Dosage: UNCERTAINTY
     Route: 048
  6. ADALAT CC [Concomitant]
     Dosage: UNCERTAINTY
     Route: 048
  7. ARGAMATE [Concomitant]
     Indication: DIABETIC NEPHROPATHY
     Dosage: UNCERTAINTY
     Route: 048
  8. FAMOTIDINE [Concomitant]
     Dosage: UNCERTAINTY
     Route: 048
  9. AVELOX [Concomitant]
     Dosage: UNCERTAINTY
     Route: 048
  10. HANP [Concomitant]
     Dosage: UNK
     Route: 048
  11. OLMESARTAN MEDOXOMIL [Concomitant]
     Dosage: UNCERTAINTY
     Route: 048
  12. URSO 250 [Concomitant]
     Dosage: UNCERTAINTY
     Route: 048
  13. DOXAZOSIN MESYLATE [Concomitant]
     Dosage: UNCERTAINTY
     Route: 048
  14. ALLOPURINOL [Concomitant]
     Dosage: UNCERTAINTY
     Route: 048
  15. HUMALOG [Concomitant]
     Indication: DIABETIC NEPHROPATHY
     Dosage: UNCERTAINTY
     Route: 065
  16. SODIUM BICARBONATE [Concomitant]
     Indication: DIABETIC NEPHROPATHY
     Dosage: UNCERTAINTY
     Route: 048
  17. DARBEPOETIN ALFA - KHK [Suspect]
     Indication: NEPHROGENIC ANAEMIA
     Dosage: 60 MUG, Q4WK
     Route: 058
     Dates: start: 20110427
  18. DARBEPOETIN ALFA - KHK [Suspect]
     Dosage: 180 MUG, QD
     Route: 058
     Dates: start: 20111026
  19. CINAL [Concomitant]
     Indication: DIABETIC NEPHROPATHY
     Dosage: UNCERTAINTY
     Route: 048
  20. CADUET [Concomitant]
     Dosage: UNCERTAINTY
     Route: 048
  21. WYSTAL [Concomitant]
     Dosage: UNCERTAINTY
     Route: 048
  22. ASPIRIN [Concomitant]
     Dosage: UNCERTAINTY
     Route: 048
  23. RASILEZ [Concomitant]
     Dosage: UNCERTAINTY
     Route: 048
  24. CARVEDILOL [Concomitant]
     Dosage: UNCERTAINTY
     Route: 048
  25. DARBEPOETIN ALFA - KHK [Suspect]
     Dosage: 120 MUG, Q4WK
     Route: 058
     Dates: start: 20110817, end: 20111012
  26. LIPITOR [Concomitant]
     Dosage: UNCERTAINTY
     Route: 048
  27. MINOPHAGEN C [Concomitant]
     Dosage: UNCERTAINTY
     Route: 048
  28. ALBUMIN (HUMAN) [Concomitant]
     Dosage: UNCERTAINTY
     Route: 048

REACTIONS (2)
  - HEPATIC NEOPLASM MALIGNANT [None]
  - BILIARY TRACT INFECTION [None]
